FAERS Safety Report 13767595 (Version 2)
Quarter: 2017Q3

REPORT INFORMATION
  Report Type: Spontaneous
  Country: BR (occurrence: BR)
  Receive Date: 20170719
  Receipt Date: 20170829
  Transmission Date: 20171127
  Serious: Yes (Hospitalization)
  Sender: FDA-Public Use
  Company Number: BR-ROCHE-1964151

PATIENT
  Sex: Female
  Weight: 52 kg

DRUGS (14)
  1. CARVEDILOL. [Concomitant]
     Active Substance: CARVEDILOL
  2. PERJETA [Suspect]
     Active Substance: PERTUZUMAB
     Indication: BREAST CANCER
     Dosage: DATE OF LATEST INFUSION BEFORE HOSPITALIZATION: 10/MAR/2017
     Route: 042
     Dates: end: 20170310
  3. PLASIL [Concomitant]
     Active Substance: METOCLOPRAMIDE HYDROCHLORIDE
  4. XARELTO [Concomitant]
     Active Substance: RIVAROXABAN
  5. TYLEX (BRAZIL) [Concomitant]
     Active Substance: ACETAMINOPHEN\CODEINE PHOSPHATE
  6. HERCEPTIN [Suspect]
     Active Substance: TRASTUZUMAB
     Indication: BREAST CANCER
     Dosage: DATE OF LATEST INFUSION BEFORE HOSPITALIZATION: 10/MAR/2017
     Route: 042
     Dates: end: 20170310
  7. MOTILIUM [Concomitant]
     Active Substance: DOMPERIDONE
  8. DIPYRONE [Concomitant]
     Active Substance: DIPYRONE
  9. ATENOLOL. [Concomitant]
     Active Substance: ATENOLOL
  10. ANASTROZOLE. [Concomitant]
     Active Substance: ANASTROZOLE
  11. PANTOPRAZOLE [Concomitant]
     Active Substance: PANTOPRAZOLE
  12. LACTULONA [Concomitant]
  13. LOSARTAN. [Concomitant]
     Active Substance: LOSARTAN
  14. VONAU [Concomitant]
     Active Substance: ONDANSETRON HYDROCHLORIDE

REACTIONS (12)
  - X-ray abnormal [Recovered/Resolved]
  - Left ventricular dilatation [Recovered/Resolved]
  - Chordae tendinae rupture [Recovered/Resolved]
  - Mitral valve incompetence [Recovered/Resolved]
  - Ejection fraction decreased [Recovered/Resolved]
  - Cardiac ventriculogram abnormal [Recovered/Resolved]
  - Ill-defined disorder [Recovered/Resolved]
  - Papillary muscle rupture [Recovered/Resolved]
  - Cardiotoxicity [Recovered/Resolved]
  - Left ventricular dysfunction [Recovered/Resolved]
  - Troponin increased [Recovered/Resolved]
  - Ventricular dysfunction [Recovered/Resolved]
